FAERS Safety Report 19587568 (Version 1)
Quarter: 2021Q3

REPORT INFORMATION
  Report Type: Spontaneous
  Country: US (occurrence: US)
  Receive Date: 20210721
  Receipt Date: 20210721
  Transmission Date: 20211014
  Serious: No
  Sender: FDA-Public Use
  Company Number: US-STRIDES ARCOLAB LIMITED-2020SP007498

PATIENT
  Age: 14 Year
  Sex: Female

DRUGS (4)
  1. MYCOPHENOLATE MOFETIL. [Suspect]
     Active Substance: MYCOPHENOLATE MOFETIL
     Indication: MORPHOEA
     Dosage: UNK
     Route: 065
  2. ABATACEPT [Concomitant]
     Active Substance: ABATACEPT
     Indication: MORPHOEA
     Dosage: 10 MILLIGRAM/KILOGRAM, AT DAYS 0, 14 AND 28, AND THEN ONCE MONTHLY
     Route: 042
  3. METHYLPREDNISOLONE. [Concomitant]
     Active Substance: METHYLPREDNISOLONE
     Indication: MORPHOEA
     Dosage: UNK
     Route: 065
  4. ABATACEPT [Concomitant]
     Active Substance: ABATACEPT
     Dosage: 125 MILLIGRAM, ONCE A WEEK
     Route: 058

REACTIONS (1)
  - Off label use [Unknown]
